FAERS Safety Report 7901701-0 (Version None)
Quarter: 2011Q4

REPORT INFORMATION
  Report Type: 
  Country: None (occurrence: None)
  Receive Date: 20111108
  Receipt Date: 20111025
  Transmission Date: 20120403
  Serious: Yes (Hospitalization, Other)
  Sender: FDA-Public Use
  Company Number: US-ELI_LILLY_AND_COMPANY-US201108009282

PATIENT
  Sex: Male

DRUGS (1)
  1. FORTEO [Suspect]
     Indication: OSTEOPOROSIS
     Dosage: 20 UG, QD
     Route: 065
     Dates: start: 20110601, end: 20110822

REACTIONS (7)
  - FALL [None]
  - HOSPITALISATION [None]
  - OTORRHOEA [None]
  - MUSCULAR WEAKNESS [None]
  - ERYTHEMA [None]
  - HEADACHE [None]
  - EAR PAIN [None]
